FAERS Safety Report 4899021-4 (Version None)
Quarter: 2006Q1

REPORT INFORMATION
  Report Type: 
  Country: None (occurrence: None)
  Receive Date: 20060202
  Receipt Date: 20060105
  Transmission Date: 20060701
  Serious: Yes (Death, Life-Threatening, Hospitalization)
  Sender: FDA-Public Use
  Company Number: US-MERCK-0601USA00443

PATIENT
  Age: 60 Year
  Sex: Male
  Weight: 77 kg

DRUGS (10)
  1. ZOCOR [Suspect]
     Indication: HYPERLIPIDAEMIA
     Route: 048
     Dates: start: 20051119, end: 20051222
  2. ALBUTEROL [Concomitant]
     Route: 055
     Dates: start: 20051119
  3. ASPIRIN [Concomitant]
     Route: 048
     Dates: start: 20051119
  4. DESITIN OINTMENT [Concomitant]
     Route: 065
     Dates: start: 20051119
  5. DILANTIN [Concomitant]
     Route: 065
     Dates: start: 20051119
  6. EPOGEN [Concomitant]
     Route: 065
     Dates: start: 20051119
  7. GENTAMICIN [Concomitant]
     Route: 047
     Dates: start: 20051126
  8. HYDRALAZINE [Concomitant]
     Route: 065
     Dates: start: 20051119
  9. LACRI-LUBE [Concomitant]
     Route: 065
     Dates: start: 20051119
  10. INSULIN [Concomitant]
     Route: 065

REACTIONS (4)
  - ARRHYTHMIA [None]
  - RENAL FAILURE [None]
  - TRANSAMINASES INCREASED [None]
  - VENTRICULAR TACHYCARDIA [None]
